FAERS Safety Report 20674269 (Version 3)
Quarter: 2023Q1

REPORT INFORMATION
  Report Type: Report from Study
  Country: CN (occurrence: None)
  Receive Date: 20220405
  Receipt Date: 20230118
  Transmission Date: 20230417
  Serious: Yes (Death, Hospitalization)
  Sender: FDA-Public Use
  Company Number: CN-Eisai Medical Research-EC-2022-112253

PATIENT
  Age: 56 Year
  Sex: Male
  Weight: 53 kg

DRUGS (3)
  1. LENVATINIB [Suspect]
     Active Substance: LENVATINIB
     Indication: Hepatocellular carcinoma
     Route: 048
     Dates: start: 20201016, end: 20210121
  2. INVESTIGATIONAL PRODUCT [Suspect]
     Active Substance: INVESTIGATIONAL PRODUCT
     Indication: Hepatocellular carcinoma
     Route: 042
     Dates: start: 20201016, end: 2021
  3. ENTECAVIR [Concomitant]
     Active Substance: ENTECAVIR
     Route: 065

REACTIONS (4)
  - Interstitial lung disease [Fatal]
  - Asthenia [Unknown]
  - Decreased appetite [Unknown]
  - Productive cough [Unknown]

NARRATIVE: CASE EVENT DATE: 20210116
